FAERS Safety Report 16083094 (Version 1)
Quarter: 2019Q1

REPORT INFORMATION
  Report Type: Spontaneous
  Country: FR (occurrence: FR)
  Receive Date: 20190318
  Receipt Date: 20190318
  Transmission Date: 20190418
  Serious: Yes (Other)
  Sender: FDA-Public Use
  Company Number: FR-ACCORD-112670

PATIENT
  Age: 47 Year
  Sex: Male

DRUGS (6)
  1. BUSPIRONE [Suspect]
     Active Substance: BUSPIRONE HYDROCHLORIDE
     Dosage: UNSPECIFIED
     Route: 048
  2. HEROIN [Suspect]
     Active Substance: DIAMORPHINE
     Dosage: 4-5 G / DAY
     Route: 045
     Dates: start: 1988
  3. TENORMINE [Suspect]
     Active Substance: ATENOLOL
     Dosage: UNSPECIFIED
     Route: 048
  4. COCAINE [Suspect]
     Active Substance: COCAINE
     Dosage: 1X/MOIS
     Route: 065
  5. PAROXETINE. [Suspect]
     Active Substance: PAROXETINE
     Dosage: BIB INFORMED
     Route: 048
  6. TRANXENE [Suspect]
     Active Substance: CLORAZEPATE DIPOTASSIUM
     Dosage: UNSPECIFIED
     Route: 048

REACTIONS (1)
  - Drug abuse [Unknown]
